FAERS Safety Report 5915809-2 (Version None)
Quarter: 2008Q4

REPORT INFORMATION
  Report Type: 
  Country: None (occurrence: None)
  Receive Date: 20081010
  Receipt Date: 20080930
  Transmission Date: 20090506
  Serious: Yes (Other)
  Sender: FDA-Public Use
  Company Number: JP-PFIZER INC-2008076868

PATIENT
  Age: 40 Year
  Sex: Male

DRUGS (5)
  1. CARDENALIN [Suspect]
     Indication: HYPERTENSION
  2. AMLODIN [Suspect]
     Indication: HYPERTENSION
  3. NU LOTAN [Suspect]
     Indication: HYPERTENSION
     Route: 048
  4. ALDOMET [Suspect]
     Indication: HYPERTENSION
     Route: 048
  5. MAINTATE [Suspect]
     Indication: HYPERTENSION
     Route: 048

REACTIONS (4)
  - GLOMERULONEPHROPATHY [None]
  - KIDNEY FIBROSIS [None]
  - RENAL ARTERIOSCLEROSIS [None]
  - RENAL VESSEL DISORDER [None]
